FAERS Safety Report 8720899 (Version 3)
Quarter: 2012Q4

REPORT INFORMATION
  Report Type: 
  Country: JP (occurrence: JP)
  Receive Date: 20120813
  Receipt Date: 20121025
  Transmission Date: 20130627
  Serious: Yes (Hospitalization)
  Sender: FDA-Public Use
  Company Number: JP-GLAXOSMITHKLINE-B0821869A

PATIENT
  Age: 70 Year
  Sex: Male

DRUGS (3)
  1. ARIXTRA [Suspect]
     Indication: DEEP VEIN THROMBOSIS
     Dosage: 5MG Per day
     Route: 058
     Dates: start: 20120731
  2. NOVO HEPARIN [Concomitant]
     Indication: DEEP VEIN THROMBOSIS
     Dates: start: 20120708, end: 20120724
  3. NOVO HEPARIN [Concomitant]
     Indication: DEEP VEIN THROMBOSIS
     Dates: start: 20120725, end: 20120730

REACTIONS (2)
  - Thrombocytopenia [Recovered/Resolved]
  - Heparin-induced thrombocytopenia [Unknown]
